FAERS Safety Report 8840704 (Version 2)
Quarter: 2015Q3

REPORT INFORMATION
  Report Type: Report from Study
  Country: US (occurrence: US)
  Receive Date: 20121015
  Receipt Date: 20150824
  Transmission Date: 20151125
  Serious: Yes (Hospitalization)
  Sender: FDA-Public Use
  Company Number: US-ROCHE-1112152

PATIENT
  Sex: Female

DRUGS (3)
  1. NUTROPIN AQ [Suspect]
     Active Substance: SOMATROPIN
     Indication: CYSTIC FIBROSIS
     Dosage: EACH INJECTION( .24ML)
     Route: 058
  2. NUTROPIN AQ [Suspect]
     Active Substance: SOMATROPIN
     Route: 058
  3. NUTROPIN AQ [Suspect]
     Active Substance: SOMATROPIN
     Indication: FAILURE TO THRIVE
     Route: 058

REACTIONS (8)
  - Weight increased [Unknown]
  - Pneumonia [Unknown]
  - Sinus headache [Unknown]
  - Pyrexia [Unknown]
  - Sinus congestion [Unknown]
  - Weight decreased [Unknown]
  - Pain [Unknown]
  - Malaise [Unknown]
